FAERS Safety Report 6852376-3 (Version None)
Quarter: 2010Q3

REPORT INFORMATION
  Report Type: 
  Country: None (occurrence: None)
  Receive Date: 20100717
  Receipt Date: 20071119
  Transmission Date: 20110219
  Serious: No
  Sender: FDA-Public Use
  Company Number: US-PFIZER INC-2007096755

PATIENT
  Sex: Female
  Weight: 111.36 kg

DRUGS (8)
  1. CHANTIX [Suspect]
     Indication: SMOKING CESSATION THERAPY
     Route: 048
     Dates: start: 20070101, end: 20070801
  2. SIMVASTATIN [Concomitant]
     Indication: BLOOD CHOLESTEROL
     Route: 048
  3. PROZAC [Concomitant]
     Route: 048
  4. COREG [Concomitant]
     Route: 048
  5. ENALAPRIL MALEATE [Concomitant]
     Route: 048
  6. LORATADINE [Concomitant]
     Indication: HYPERSENSITIVITY
     Route: 048
  7. FLUTICASONE [Concomitant]
     Route: 045
  8. COMBIVENT [Concomitant]
     Route: 055

REACTIONS (7)
  - ABDOMINAL DISCOMFORT [None]
  - ABDOMINAL DISTENSION [None]
  - ABNORMAL DREAMS [None]
  - FLATULENCE [None]
  - MEDICATION ERROR [None]
  - NAUSEA [None]
  - WEIGHT INCREASED [None]
